FAERS Safety Report 19733867 (Version 1)
Quarter: 2021Q3

REPORT INFORMATION
  Report Type: Spontaneous
  Country: US (occurrence: US)
  Receive Date: 20210824
  Receipt Date: 20210824
  Transmission Date: 20211014
  Serious: Yes (Hospitalization, Other)
  Sender: FDA-Public Use
  Company Number: US-ALEMBIC PHARMACUETICALS LIMITED-2021SCAL000354

PATIENT

DRUGS (5)
  1. ATORVASTATIN [Suspect]
     Active Substance: ATORVASTATIN
     Indication: PRODUCT USED FOR UNKNOWN INDICATION
     Dosage: 80 MG, QD
     Route: 065
  2. LEFLUNOMIDE. [Suspect]
     Active Substance: LEFLUNOMIDE
     Indication: PSORIATIC ARTHROPATHY
     Dosage: UNK
     Route: 065
  3. DAPTOMYCIN. [Suspect]
     Active Substance: DAPTOMYCIN
     Indication: SKIN BACTERIAL INFECTION
     Dosage: 750 MG, QD
     Route: 065
  4. ORITAVANCIN. [Concomitant]
     Active Substance: ORITAVANCIN
     Indication: SKIN BACTERIAL INFECTION
     Dosage: 1200 MG
     Route: 042
  5. SULFAMETHOXAZOLE AND TRIMETHOPRIM [Concomitant]
     Active Substance: SULFAMETHOXAZOLE\TRIMETHOPRIM
     Indication: SOFT TISSUE INFECTION
     Dosage: UNK
     Route: 048

REACTIONS (8)
  - Condition aggravated [Unknown]
  - Drug interaction [Unknown]
  - Rhabdomyolysis [Unknown]
  - Fatigue [Unknown]
  - Tachycardia [Unknown]
  - Myalgia [Unknown]
  - Asthenia [Unknown]
  - Blood creatine phosphokinase increased [Unknown]
